FAERS Safety Report 8576326-7 (Version None)
Quarter: 2012Q3

REPORT INFORMATION
  Report Type: 
  Country: None (occurrence: None)
  Receive Date: 20120725
  Receipt Date: 20120710
  Transmission Date: 20120928
  Serious: Yes (Death, Other)
  Sender: FDA-Public Use
  Company Number: FK201201969

PATIENT
  Age: 71 Year
  Sex: Male

DRUGS (3)
  1. FLUOROURACIL [Concomitant]
  2. LEUCOVORINE CALCIUM (CALCIUM FOLINATE) [Concomitant]
  3. OXALIPLATIN [Suspect]
     Indication: COLORECTAL CANCER

REACTIONS (10)
  - THROMBOCYTOPENIA [None]
  - RESPIRATORY FAILURE [None]
  - MUSCULOSKELETAL PAIN [None]
  - NO THERAPEUTIC RESPONSE [None]
  - PNEUMONITIS [None]
  - NEUTROPENIA [None]
  - PULMONARY FIBROSIS [None]
  - FATIGUE [None]
  - BRONCHOPNEUMONIA [None]
  - FIBROSIS [None]
